FAERS Safety Report 4320704-9 (Version None)
Quarter: 2004Q1

REPORT INFORMATION
  Report Type: 
  Country: None (occurrence: None)
  Receive Date: 20040318
  Receipt Date: 20040301
  Transmission Date: 20041129
  Serious: Yes (Hospitalization)
  Sender: FDA-Public Use
  Company Number: A06200400063

PATIENT
  Age: 69 Year
  Sex: Male

DRUGS (1)
  1. CLOPIDOGREL BISULFATE [Suspect]
     Indication: THROMBOSIS PROPHYLAXIS
     Dosage: 75 MG OD ORAL
     Route: 048

REACTIONS (4)
  - ABASIA [None]
  - DEEP VEIN THROMBOSIS [None]
  - TREATMENT NONCOMPLIANCE [None]
  - URTICARIA [None]
